FAERS Safety Report 19469717 (Version 2)
Quarter: 2021Q3

REPORT INFORMATION
  Report Type: Spontaneous
  Country: GB (occurrence: GB)
  Receive Date: 20210628
  Receipt Date: 20210723
  Transmission Date: 20211014
  Serious: Yes (Other)
  Sender: FDA-Public Use
  Company Number: GB-GLAXOSMITHKLINE-GBCH2021040572

PATIENT
  Age: 49 Year
  Sex: Female
  Weight: 84 kg

DRUGS (3)
  1. OMEPRAZOLE. [Concomitant]
     Active Substance: OMEPRAZOLE
     Indication: DYSPEPSIA
     Dosage: UNK
     Route: 065
     Dates: start: 20180101
  2. ASTRAZENECA COVID?19 VACCINE [Suspect]
     Active Substance: AZD-1222
     Indication: PRODUCT USED FOR UNKNOWN INDICATION
     Dosage: UNK, (DOSE 2)
     Route: 065
     Dates: start: 20210605
  3. IBUPROFEN. [Suspect]
     Active Substance: IBUPROFEN
     Indication: SWELLING FACE
     Dosage: UNK
     Route: 065

REACTIONS (8)
  - Gingival swelling [Unknown]
  - Muscular weakness [Unknown]
  - Mouth ulceration [Recovering/Resolving]
  - Dizziness [Recovering/Resolving]
  - Lip swelling [Recovering/Resolving]
  - Headache [Recovering/Resolving]
  - Fatigue [Recovering/Resolving]
  - Vision blurred [Unknown]

NARRATIVE: CASE EVENT DATE: 20210611
